FAERS Safety Report 5199981-0 (Version None)
Quarter: 2007Q1

REPORT INFORMATION
  Report Type: 
  Country: None (occurrence: None)
  Receive Date: 20070105
  Receipt Date: 20061216
  Transmission Date: 20070707
  Serious: Yes (Disabling)
  Sender: FDA-Public Use
  Company Number: 2006PK02646

PATIENT
  Age: 57 Year
  Sex: Female

DRUGS (1)
  1. NOLVADEX [Suspect]
     Indication: BREAST CANCER FEMALE
     Dates: start: 19980101, end: 20030101

REACTIONS (4)
  - CATARACT [None]
  - CORNEAL DISORDER [None]
  - DIPLOPIA [None]
  - VISUAL ACUITY REDUCED [None]
